FAERS Safety Report 22521239 (Version 1)
Quarter: 2023Q2

REPORT INFORMATION
  Report Type: Spontaneous
  Country: US (occurrence: None)
  Receive Date: 20230602
  Receipt Date: 20230602
  Transmission Date: 20230721
  Serious: Yes (Other)
  Sender: FDA-Public Use
  Company Number: None

PATIENT
  Age: 62 Year
  Sex: Female
  Weight: 67.13 kg

DRUGS (33)
  1. ROZLYTREK [Suspect]
     Active Substance: ENTRECTINIB
     Indication: Lung neoplasm malignant
     Dosage: 600MG DAILY BY MOUTH
     Route: 048
     Dates: start: 20230510, end: 20230524
  2. ALBUTEROL SULFATE [Concomitant]
     Active Substance: ALBUTEROL SULFATE
  3. AMLODIPINE BESYLATE [Concomitant]
     Active Substance: AMLODIPINE BESYLATE
  4. ATORVASTATIN CALCIUM [Concomitant]
     Active Substance: ATORVASTATIN CALCIUM
  5. BYDUREON BCISE [Concomitant]
     Active Substance: EXENATIDE
  6. CARISOPRODOL [Concomitant]
     Active Substance: CARISOPRODOL
  7. CARVEDILOL [Concomitant]
     Active Substance: CARVEDILOL
  8. CINNAMON [Concomitant]
     Active Substance: CINNAMON
  9. CLONAZEPAM [Concomitant]
     Active Substance: CLONAZEPAM
  10. CLOPIDOGREL BISULFATE [Concomitant]
     Active Substance: CLOPIDOGREL BISULFATE
  11. FERROUS SULFATE [Concomitant]
     Active Substance: FERROUS SULFATE
  12. FLUOXETINE HYDROCHLORIDE [Concomitant]
     Active Substance: FLUOXETINE HYDROCHLORIDE
  13. GABAPENTIN [Concomitant]
     Active Substance: GABAPENTIN
  14. HUMALOG KWIKPEN [Concomitant]
     Active Substance: INSULIN LISPRO
  15. HYDROXYZINE HYDROCHLORIDE [Concomitant]
     Active Substance: HYDROXYZINE HYDROCHLORIDE
  16. KLOR-CON M20 [Concomitant]
     Active Substance: POTASSIUM CHLORIDE
  17. LATANOPROST [Concomitant]
     Active Substance: LATANOPROST
  18. MECLIZINE HYDROCHLORIDE [Concomitant]
     Active Substance: MECLIZINE HYDROCHLORIDE
  19. MONTELUKAST SODIUM [Concomitant]
     Active Substance: MONTELUKAST SODIUM
  20. Mupirocin External Ointment 2% [Concomitant]
  21. Nystop External Powder [Concomitant]
  22. OMEPRAZOLE [Concomitant]
     Active Substance: OMEPRAZOLE
  23. ONDANSETRON HYDROCHLORIDE [Concomitant]
     Active Substance: ONDANSETRON HYDROCHLORIDE
  24. PREDNISONE [Concomitant]
     Active Substance: PREDNISONE
  25. SM Magnesium [Concomitant]
  26. Symbicort Inhalation Aerosol [Concomitant]
  27. THEOPHYLLINE ANHYDROUS [Concomitant]
     Active Substance: THEOPHYLLINE ANHYDROUS
  28. TRAMADOL HCL [Concomitant]
     Active Substance: TRAMADOL HYDROCHLORIDE
  29. TRESIBA [Concomitant]
     Active Substance: INSULIN DEGLUDEC
  30. Ultra Omega-3 Fish Oil [Concomitant]
  31. VASCEPA [Concomitant]
     Active Substance: ICOSAPENT ETHYL
  32. MENAQUINONE 6 [Concomitant]
     Active Substance: MENAQUINONE 6
  33. YL Vitamin C-Rose Hips [Concomitant]

REACTIONS (6)
  - Asthenia [None]
  - Eating disorder [None]
  - Headache [None]
  - Nausea [None]
  - Blood glucose increased [None]
  - Therapy cessation [None]

NARRATIVE: CASE EVENT DATE: 20230517
